FAERS Safety Report 19144860 (Version 2)
Quarter: 2021Q2

REPORT INFORMATION
  Report Type: Other
  Country: US (occurrence: US)
  Receive Date: 20210416
  Receipt Date: 20210504
  Transmission Date: 20210717
  Serious: Yes (Other)
  Sender: FDA-Public Use
  Company Number: US-ROCHE-2805903

PATIENT
  Sex: Female
  Weight: 62.65 kg

DRUGS (3)
  1. PREDNISONE. [Concomitant]
     Active Substance: PREDNISONE
  2. ACTEMRA [Suspect]
     Active Substance: TOCILIZUMAB
  3. ACTEMRA [Suspect]
     Active Substance: TOCILIZUMAB
     Indication: GIANT CELL ARTERITIS
     Dosage: INJECT 162MG SUBCUTANEOUSLY EVERY WEEK
     Route: 058
     Dates: start: 20210329

REACTIONS (6)
  - Latent tuberculosis [Unknown]
  - Condition aggravated [Unknown]
  - Lung adenocarcinoma [Unknown]
  - Pain [Unknown]
  - Gout [Unknown]
  - Hypertension [Unknown]
